FAERS Safety Report 7367132-X (Version None)
Quarter: 2011Q1

REPORT INFORMATION
  Report Type: 
  Country: None (occurrence: None)
  Receive Date: 20110322
  Receipt Date: 20110309
  Transmission Date: 20110831
  Serious: Yes (Other)
  Sender: FDA-Public Use
  Company Number: IR-GENENTECH-312045

PATIENT
  Age: 3 Year
  Sex: Male

DRUGS (14)
  1. MABTHERA [Suspect]
     Dosage: 100 MG, 1/WEEK
     Route: 042
     Dates: start: 20101226
  2. METHYLPREDNISOLONE [Suspect]
     Indication: JUVENILE ARTHRITIS
     Dosage: 100 MG, UNK
     Route: 065
     Dates: start: 20101226
  3. HYDROXYZINE [Suspect]
     Indication: JUVENILE ARTHRITIS
     Dosage: 5 MG, TID
     Route: 048
     Dates: start: 20101226
  4. HYDROXYZINE [Suspect]
     Dosage: 5 MG, TID
     Route: 048
     Dates: start: 20110102
  5. MABTHERA [Suspect]
     Dosage: 100 MG, 1/WEEK
     Route: 042
     Dates: start: 20110102
  6. HYDROCORTISONE [Suspect]
     Indication: JUVENILE ARTHRITIS
     Dosage: 200 MG, UNK
     Route: 065
     Dates: start: 20101212
  7. CHLORPHENIRAMINE MALEATE [Suspect]
     Indication: JUVENILE ARTHRITIS
     Dosage: 2 MG, UNK
     Route: 042
     Dates: start: 20110102
  8. MABTHERA [Suspect]
     Dosage: 100 MG, 1/WEEK
     Route: 042
     Dates: start: 20101219
  9. METHYLPREDNISOLONE [Suspect]
     Dosage: 100 MG, UNK
     Route: 065
     Dates: start: 20110102
  10. METHOTREXATE [Concomitant]
     Indication: PRODUCT USED FOR UNKNOWN INDICATION
     Dosage: 5 MG, 1/WEEK
  11. MABTHERA [Suspect]
     Indication: JUVENILE ARTHRITIS
     Dosage: 100 MG, 1/WEEK
     Route: 042
     Dates: start: 20101212
  12. PREDNISOLONE [Concomitant]
     Indication: PRODUCT USED FOR UNKNOWN INDICATION
     Dosage: 5 MG, QD
  13. HYDROCORTISONE [Suspect]
     Dosage: 200 MG, UNK
     Route: 065
     Dates: start: 20101219
  14. FOLIC ACID [Concomitant]
     Indication: PRODUCT USED FOR UNKNOWN INDICATION
     Dosage: 5 MG, 1/WEEK

REACTIONS (3)
  - URTICARIA [None]
  - PAIN IN EXTREMITY [None]
  - CHILLS [None]
